FAERS Safety Report 11068300 (Version 4)
Quarter: 2015Q2

REPORT INFORMATION
  Report Type: Spontaneous
  Country: IT (occurrence: IT)
  Receive Date: 20150427
  Receipt Date: 20150518
  Transmission Date: 20150821
  Serious: Yes (Hospitalization)
  Sender: FDA-Public Use
  Company Number: IT-PFIZER INC-2015144283

PATIENT
  Age: 61 Year
  Sex: Male

DRUGS (5)
  1. ATENOLOL. [Suspect]
     Active Substance: ATENOLOL
     Indication: HYPERTENSION
     Dosage: 100 MG, 1X/DAY
     Route: 048
  2. ENALAPRIL RATIOPHARM [Suspect]
     Active Substance: ENALAPRIL
     Indication: HYPERTENSION
     Dosage: 20 MG, 1X/DAY
     Route: 048
  3. MONOCINQUE [Suspect]
     Active Substance: ISOSORBIDE MONONITRATE
     Dosage: 2 DF, 1X/DAY
     Route: 048
  4. CARDIRENE [Suspect]
     Active Substance: ASPIRIN DL-LYSINE
     Dosage: 160 MG POWDER FOR ORAL SOLUTION, DAILY
     Route: 048
  5. CRESTOR [Suspect]
     Active Substance: ROSUVASTATIN CALCIUM
     Indication: DYSLIPIDAEMIA
     Dosage: 1 DF, 1X/DAY
     Route: 048

REACTIONS (6)
  - Tachycardia [Recovered/Resolved]
  - Treatment noncompliance [Recovered/Resolved]
  - Dyspnoea [Recovered/Resolved]
  - Influenza [Unknown]
  - Oedema peripheral [Recovered/Resolved]
  - Rales [Recovered/Resolved]

NARRATIVE: CASE EVENT DATE: 20140429
